FAERS Safety Report 8487915-2 (Version None)
Quarter: 2012Q3

REPORT INFORMATION
  Report Type: 
  Country: None (occurrence: None)
  Receive Date: 20120705
  Receipt Date: 20120622
  Transmission Date: 20120928
  Serious: Yes (Other)
  Sender: FDA-Public Use
  Company Number: JP-PFIZER INC-2012159175

PATIENT
  Age: 87 Year
  Sex: Female

DRUGS (12)
  1. MICARDIS [Suspect]
     Dosage: 20 MG, DAILY
     Route: 048
  2. NEUROTROPIN [Concomitant]
     Dosage: UNK
  3. ALLEGRA [Concomitant]
     Dosage: UNK
  4. MAGMITT [Concomitant]
     Dosage: UNK
  5. LIMAPROST [Concomitant]
     Dosage: UNK
  6. MUCOSTA [Concomitant]
     Dosage: UNK
  7. D ALFA [Concomitant]
     Dosage: UNK
  8. ARIMIDEX [Concomitant]
     Dosage: UNK
  9. RETICOLAN [Concomitant]
     Dosage: UNK
  10. LIMAPROST [Concomitant]
     Dosage: UNK
  11. RABEPRAZOLE SODIUM [Concomitant]
     Dosage: UNK
  12. LIPITOR [Suspect]
     Dosage: 10 MG, DAILY
     Route: 048
     Dates: start: 20120413

REACTIONS (2)
  - PLATELET COUNT DECREASED [None]
  - GINGIVAL BLEEDING [None]
